FAERS Safety Report 25358739 (Version 1)
Quarter: 2025Q2

REPORT INFORMATION
  Report Type: Spontaneous
  Country: JP (occurrence: JP)
  Receive Date: 20250526
  Receipt Date: 20250526
  Transmission Date: 20250716
  Serious: Yes (Other)
  Sender: ELI LILLY AND COMPANY
  Company Number: JP-ELI_LILLY_AND_COMPANY-JP202505016782

PATIENT

DRUGS (1)
  1. NECITUMUMAB [Suspect]
     Active Substance: NECITUMUMAB
     Indication: Product used for unknown indication
     Route: 042

REACTIONS (1)
  - Dermatitis acneiform [Unknown]
